FAERS Safety Report 14992102 (Version 2)
Quarter: 2018Q3

REPORT INFORMATION
  Report Type: Report from Study
  Country: US (occurrence: US)
  Receive Date: 20180608
  Receipt Date: 20180711
  Transmission Date: 20181010
  Serious: Yes (Hospitalization, Other)
  Sender: FDA-Public Use
  Company Number: US-JAZZ-2018-US-009181

PATIENT
  Sex: Male

DRUGS (17)
  1. XYREM [Suspect]
     Active Substance: SODIUM OXYBATE
     Dosage: 3.5 G, BID
     Route: 048
     Dates: start: 201506, end: 201507
  2. XYREM [Suspect]
     Active Substance: SODIUM OXYBATE
     Indication: NARCOLEPSY
     Dosage: 2.25 G, BID
     Route: 048
     Dates: start: 201010, end: 201010
  3. MODAFINIL. [Concomitant]
     Active Substance: MODAFINIL
  4. BUPROPION. [Concomitant]
     Active Substance: BUPROPION
  5. MELATONIN [Concomitant]
     Active Substance: MELATONIN
  6. WELLBUTRIN [Concomitant]
     Active Substance: BUPROPION HYDROCHLORIDE
  7. XYREM [Suspect]
     Active Substance: SODIUM OXYBATE
     Dosage: DOSE ADJUSTMENT
     Route: 048
     Dates: start: 201010, end: 201011
  8. XYREM [Suspect]
     Active Substance: SODIUM OXYBATE
     Dosage: 4.5 G, BID
     Route: 048
     Dates: start: 201708
  9. LAMICTAL [Concomitant]
     Active Substance: LAMOTRIGINE
  10. NUVIGIL [Concomitant]
     Active Substance: ARMODAFINIL
  11. LEVOTHYROXIN [Concomitant]
     Active Substance: LEVOTHYROXINE
  12. RISPERDAL [Concomitant]
     Active Substance: RISPERIDONE
  13. XYREM [Suspect]
     Active Substance: SODIUM OXYBATE
     Dosage: 4.5 G, BID
     Route: 048
     Dates: start: 201011, end: 201406
  14. TOPIRAMATE. [Concomitant]
     Active Substance: TOPIRAMATE
  15. LITHIUM CARBONATE. [Concomitant]
     Active Substance: LITHIUM CARBONATE
  16. METHYLPHENIDAT [Concomitant]
     Active Substance: METHYLPHENIDATE
  17. TRILEPTAL [Concomitant]
     Active Substance: OXCARBAZEPINE

REACTIONS (1)
  - Hospitalisation [Unknown]
